FAERS Safety Report 8035567-8 (Version None)
Quarter: 2012Q1

REPORT INFORMATION
  Report Type: 
  Country: None (occurrence: None)
  Receive Date: 20120110
  Receipt Date: 20120110
  Transmission Date: 20120608
  Serious: Yes (Other)
  Sender: FDA-Public Use
  Company Number: None

PATIENT
  Age: 51 Year
  Sex: Female
  Weight: 72.5755 kg

DRUGS (2)
  1. PREDNISONE [Suspect]
     Indication: SWELLING
     Dosage: 4 PILLS 1 TIME A DAY ORAL TOOK 7 DAYS WAS GO DOWN 1 PILL EVERY 7 DAYS
     Route: 048
  2. PREDNISONE [Suspect]
     Indication: URTICARIA
     Dosage: 4 PILLS 1 TIME A DAY ORAL TOOK 7 DAYS WAS GO DOWN 1 PILL EVERY 7 DAYS
     Route: 048

REACTIONS (9)
  - PHARYNGEAL OEDEMA [None]
  - HEADACHE [None]
  - NERVOUSNESS [None]
  - FLUSHING [None]
  - LOCAL SWELLING [None]
  - DIZZINESS [None]
  - CHILLS [None]
  - PALPITATIONS [None]
  - SWELLING FACE [None]
